FAERS Safety Report 6472421-7 (Version None)
Quarter: 2009Q4

REPORT INFORMATION
  Report Type: 
  Country: None (occurrence: None)
  Receive Date: 20091201
  Receipt Date: 20091117
  Transmission Date: 20100525
  Serious: Yes (Other)
  Sender: FDA-Public Use
  Company Number: 236766K09USA

PATIENT
  Age: 59 Year
  Sex: Female
  Weight: 59 kg

DRUGS (5)
  1. REBIF [Suspect]
     Indication: MULTIPLE SCLEROSIS
     Dosage: 44 MCG, 3 IN 1 WEEKS, SUBCUTANEOUS
     Route: 058
     Dates: start: 20030811
  2. BENICAR/HYDROCHLOROTHIAZIDE        (BENICAR HCT) [Concomitant]
  3. METOPROLOL (METOPROLOL /00376901/) [Concomitant]
  4. TYLENOL [Concomitant]
  5. UNSPECIFIED STEROIDS (CORTICOSTEROIDS) [Concomitant]

REACTIONS (6)
  - ARTHROPATHY [None]
  - CATARACT [None]
  - HYPERSENSITIVITY [None]
  - MALIGNANT MELANOMA IN SITU [None]
  - OPEN WOUND [None]
  - SUTURE RELATED COMPLICATION [None]
